FAERS Safety Report 23313014 (Version 2)
Quarter: 2025Q4

REPORT INFORMATION
  Report Type: Report from Study
  Country: US (occurrence: US)
  Receive Date: 20231219
  Receipt Date: 20251230
  Transmission Date: 20260119
  Serious: No
  Sender: RECORDATI
  Company Number: US-RECORDATI-2023004383

PATIENT
  Sex: Female

DRUGS (4)
  1. SIGNIFOR LAR [Suspect]
     Active Substance: PASIREOTIDE PAMOATE
     Indication: Product used for unknown indication
     Dosage: 60 MILLIGRAM, EVERY 28 DAYS
     Route: 030
  2. CABERGOLINE [Concomitant]
     Active Substance: CABERGOLINE
     Indication: Product used for unknown indication
     Dosage: UNK
  3. CABERGOLINE [Concomitant]
     Active Substance: CABERGOLINE
     Dosage: DECREASED
  4. CABERGOLINE [Concomitant]
     Active Substance: CABERGOLINE
     Dosage: INCREASED

REACTIONS (4)
  - Laboratory test abnormal [Unknown]
  - Laboratory test abnormal [Unknown]
  - Laboratory test abnormal [Unknown]
  - Injection site pain [Unknown]

NARRATIVE: CASE EVENT DATE: 20230101
